FAERS Safety Report 15065608 (Version 2)
Quarter: 2018Q3

REPORT INFORMATION
  Report Type: Spontaneous
  Country: US (occurrence: US)
  Receive Date: 20180626
  Receipt Date: 20180723
  Transmission Date: 20181010
  Serious: No
  Sender: FDA-Public Use
  Company Number: US-PFIZER INC-2018254520

PATIENT
  Age: 48 Year
  Sex: Female
  Weight: 58.6 kg

DRUGS (1)
  1. KETOROLAC TROMETHAMINE. [Suspect]
     Active Substance: KETOROLAC TROMETHAMINE
     Indication: MIGRAINE
     Dosage: 60 MG, UNK (30MG/1ML VIALS. INJECT 2 VIALS)
     Dates: start: 20180507

REACTIONS (3)
  - Intercepted drug dispensing error [Unknown]
  - Intentional product use issue [Unknown]
  - Drug ineffective [Unknown]
